FAERS Safety Report 7386206-0 (Version None)
Quarter: 2011Q1

REPORT INFORMATION
  Report Type: 
  Country: None (occurrence: None)
  Receive Date: 20110331
  Receipt Date: 20101005
  Transmission Date: 20110831
  Serious: Yes (Hospitalization, Other)
  Sender: FDA-Public Use
  Company Number: US-BAYER-201016041NA

PATIENT
  Sex: Female
  Weight: 73.636 kg

DRUGS (3)
  1. NUVARING [Concomitant]
     Dates: start: 20091201, end: 20100301
  2. YAZ [Suspect]
     Indication: ACNE
     Route: 048
     Dates: start: 20080501, end: 20090201
  3. YASMIN [Suspect]
     Indication: ACNE
     Route: 048
     Dates: start: 20050501, end: 20061201

REACTIONS (4)
  - CHOLECYSTITIS CHRONIC [None]
  - GALLBLADDER CHOLESTEROLOSIS [None]
  - BILIARY COLIC [None]
  - CHOLELITHIASIS [None]
